FAERS Safety Report 6782571-3 (Version None)
Quarter: 2010Q2

REPORT INFORMATION
  Report Type: 
  Country: None (occurrence: None)
  Receive Date: 20100621
  Receipt Date: 20100608
  Transmission Date: 20101027
  Serious: Yes (Other)
  Sender: FDA-Public Use
  Company Number: CA-GENENTECH-293974

PATIENT
  Sex: Female
  Weight: 86 kg

DRUGS (6)
  1. XOLAIR [Suspect]
     Indication: ASTHMA
     Dosage: 150 MG, 1/MONTH
     Route: 058
     Dates: start: 20090610
  2. XOLAIR [Suspect]
     Dosage: 150 MG, 1/MONTH
     Dates: start: 20090708
  3. XOLAIR [Suspect]
     Dosage: 150 MG, 1/MONTH
     Dates: start: 20090805
  4. XOLAIR [Suspect]
     Dosage: 150 MG, 1/MONTH
     Route: 058
     Dates: start: 20091028
  5. XOLAIR [Suspect]
     Dosage: 150 MG, 1/MONTH
     Route: 058
     Dates: start: 20091126
  6. XOLAIR [Suspect]
     Dosage: 150 MG, 1/MONTH
     Route: 058
     Dates: start: 20100524

REACTIONS (11)
  - COUGH [None]
  - DYSPNOEA EXERTIONAL [None]
  - EAR DISCOMFORT [None]
  - FATIGUE [None]
  - INJECTION SITE HAEMATOMA [None]
  - INSOMNIA [None]
  - PARAESTHESIA [None]
  - PNEUMONIA [None]
  - PRODUCTIVE COUGH [None]
  - PULMONARY CONGESTION [None]
  - WHEEZING [None]
